FAERS Safety Report 23611086 (Version 1)
Quarter: 2024Q1

REPORT INFORMATION
  Report Type: Spontaneous
  Country: AT (occurrence: AT)
  Receive Date: 20240308
  Receipt Date: 20240308
  Transmission Date: 20240410
  Serious: Yes (Death)
  Sender: FDA-Public Use
  Company Number: AT-SERVIER-S24002278

PATIENT

DRUGS (3)
  1. TIBSOVO [Suspect]
     Active Substance: IVOSIDENIB
     Indication: Acute myeloid leukaemia recurrent
     Dosage: 500 MG, QD
     Route: 048
     Dates: start: 20240205, end: 20240210
  2. TIBSOVO [Suspect]
     Active Substance: IVOSIDENIB
     Dosage: 250 MG, QD
     Route: 048
     Dates: start: 20240214
  3. TIBSOVO [Suspect]
     Active Substance: IVOSIDENIB
     Dosage: ALTERNATELY ON ONE DAY WITH 250MG QD AND THE NEXT DAY WITH 500MG QD
     Route: 048
     Dates: start: 20240219, end: 20240222

REACTIONS (4)
  - Off label use [Recovered/Resolved]
  - Electrocardiogram QT prolonged [Recovered/Resolved]
  - Product use issue [Recovered/Resolved]
  - Necrotising fasciitis [Fatal]

NARRATIVE: CASE EVENT DATE: 20240101
